FAERS Safety Report 17434229 (Version 3)
Quarter: 2020Q2

REPORT INFORMATION
  Report Type: Spontaneous
  Country: US (occurrence: US)
  Receive Date: 20200219
  Receipt Date: 20200605
  Transmission Date: 20200713
  Serious: No
  Sender: FDA-Public Use
  Company Number: US-PFIZER INC-2020071528

PATIENT
  Age: 58 Year
  Sex: Female
  Weight: 66.67 kg

DRUGS (1)
  1. ALAVERT ALLERGY [Suspect]
     Active Substance: LORATADINE
     Indication: RHINORRHOEA
     Dosage: 1 TABLET, 1X/DAY (3 TABLETS IN 3 DAYS)

REACTIONS (1)
  - Drug ineffective [Recovered/Resolved]
